FAERS Safety Report 4715658-7 (Version None)
Quarter: 2005Q3

REPORT INFORMATION
  Report Type: 
  Country: None (occurrence: None)
  Receive Date: 20050713
  Receipt Date: 20050629
  Transmission Date: 20060218
  Serious: Yes (Hospitalization)
  Sender: FDA-Public Use
  Company Number: 032-8

PATIENT
  Age: 67 Year
  Sex: Male

DRUGS (15)
  1. TEVETEN [Suspect]
     Indication: HYPERTENSION
     Dosage: 600 MG QD PO
     Route: 048
     Dates: start: 20011103
  2. TEVETEN [Suspect]
     Indication: THROMBOSIS PROPHYLAXIS
     Dosage: 600 MG QD PO
     Route: 048
     Dates: start: 20011103
  3. CYCLOSPORINE [Concomitant]
  4. MYCOPHENOLATE MOFETIL [Concomitant]
  5. PREDNISONE [Concomitant]
  6. CALCIUM ACETATE [Concomitant]
  7. COLECALCIFEROL [Concomitant]
  8. MAGNESIUM [Concomitant]
  9. ASPIRIN [Concomitant]
  10. METOPROLOL TARTRATE [Concomitant]
  11. PRAVASTATIN SODIUM [Concomitant]
  12. ESOMEPRAZOLE [Concomitant]
  13. URAPIDIL [Concomitant]
  14. TORSEMIDE [Concomitant]
  15. DOXAZOSIN MESYLATE [Concomitant]

REACTIONS (1)
  - INGUINAL HERNIA [None]
